FAERS Safety Report 22621595 (Version 1)
Quarter: 2023Q2

REPORT INFORMATION
  Report Type: Spontaneous
  Country: US (occurrence: None)
  Receive Date: 20230619
  Receipt Date: 20230619
  Transmission Date: 20230721
  Serious: No
  Sender: FDA-Public Use
  Company Number: None

PATIENT
  Age: 25 Year
  Sex: Female
  Weight: 54 kg

DRUGS (9)
  1. SIMPONI ARIA [Suspect]
     Active Substance: GOLIMUMAB
     Indication: Colitis ulcerative
  2. STELARA [Concomitant]
     Active Substance: USTEKINUMAB
  3. AZATHIOPRINE [Concomitant]
     Active Substance: AZATHIOPRINE
  4. VITAMIN B COMPLEX [Concomitant]
     Active Substance: CYANOCOBALAMIN\DEXPANTHENOL\NIACINAMIDE\PYRIDOXINE HYDROCHLORIDE\RIBOFLAVIN 5^-PHOSPHATE SODIUM\THIA
  5. IRON SUPLEMNTS TAKEN WITH VITAMIN C [Concomitant]
  6. CANE [Concomitant]
  7. VITAMIN D [Concomitant]
     Active Substance: VITAMIN D NOS
  8. GABAPENTIN [Concomitant]
     Active Substance: GABAPENTIN
  9. VITAMINS [Concomitant]

REACTIONS (2)
  - Anxiety [None]
  - Palpitations [None]

NARRATIVE: CASE EVENT DATE: 20230215
